FAERS Safety Report 18609927 (Version 1)
Quarter: 2020Q4

REPORT INFORMATION
  Report Type: Spontaneous
  Country: CN (occurrence: CN)
  Receive Date: 20201214
  Receipt Date: 20201214
  Transmission Date: 20210114
  Serious: Yes (Other)
  Sender: FDA-Public Use
  Company Number: CN-ROCHE-2727893

PATIENT
  Age: 47 Year
  Sex: Male

DRUGS (13)
  1. VINORELBINE [Concomitant]
     Active Substance: VINORELBINE TARTRATE
     Dosage: ON DAY1-2
     Dates: start: 20200115
  2. DOXORUBICIN HYDROCHLORIDE INJECTION [Concomitant]
     Active Substance: DOXORUBICIN HYDROCHLORIDE
     Indication: MANTLE CELL LYMPHOMA
     Dosage: 20 MG ON DAY1, 40 MG ON DAY3
     Route: 065
     Dates: start: 20170427
  3. ZANUBRUTINIB [Concomitant]
     Active Substance: ZANUBRUTINIB
     Dates: start: 20201015
  4. IBRUTINIB [Concomitant]
     Active Substance: IBRUTINIB
     Indication: MANTLE CELL LYMPHOMA
     Dates: start: 20180613
  5. ETOPOSIDE. [Concomitant]
     Active Substance: ETOPOSIDE
     Dosage: ON DAY1-4
     Dates: start: 20200115
  6. ZANUBRUTINIB [Concomitant]
     Active Substance: ZANUBRUTINIB
     Indication: MANTLE CELL LYMPHOMA
     Dates: start: 20200825
  7. MABTHERA [Suspect]
     Active Substance: RITUXIMAB
     Indication: MANTLE CELL LYMPHOMA
     Dosage: ON DAY0
     Route: 065
     Dates: start: 20170424
  8. VINORELBINE [Concomitant]
     Active Substance: VINORELBINE TARTRATE
     Indication: MANTLE CELL LYMPHOMA
     Dosage: ON DAY1-4
     Dates: start: 20170424
  9. DEXAMETHASONE. [Concomitant]
     Active Substance: DEXAMETHASONE
     Indication: MANTLE CELL LYMPHOMA
     Dosage: ON DAY1-4
     Dates: start: 20170424
  10. ETOPOSIDE. [Concomitant]
     Active Substance: ETOPOSIDE
     Indication: MANTLE CELL LYMPHOMA
     Dosage: ON DAY1-4
     Dates: start: 20170424
  11. CYCLOPHOSPHAMIDE. [Concomitant]
     Active Substance: CYCLOPHOSPHAMIDE
     Indication: MANTLE CELL LYMPHOMA
     Dosage: ON DAY5 AND DAY7
     Dates: start: 20170424
  12. LENALIDOMIDE [Concomitant]
     Active Substance: LENALIDOMIDE
     Indication: MANTLE CELL LYMPHOMA
     Dates: start: 20190101
  13. CYCLOPHOSPHAMIDE. [Concomitant]
     Active Substance: CYCLOPHOSPHAMIDE
     Dosage: ON DAY5
     Dates: start: 20200115

REACTIONS (7)
  - Haemangioma [Unknown]
  - Off label use [Unknown]
  - Intentional product use issue [Unknown]
  - Platelet count decreased [Unknown]
  - Megakaryocytes decreased [Unknown]
  - Pneumonitis [Unknown]
  - Noninfective sialoadenitis [Unknown]
